FAERS Safety Report 5897221-8 (Version None)
Quarter: 2008Q3

REPORT INFORMATION
  Report Type: 
  Country: None (occurrence: None)
  Receive Date: 20080923
  Receipt Date: 20080909
  Transmission Date: 20090109
  Serious: No
  Sender: FDA-Public Use
  Company Number: B0537702A

PATIENT
  Age: 38 Year
  Sex: Female

DRUGS (10)
  1. LAMIVUDINE [Suspect]
     Indication: HIV INFECTION
     Dates: start: 19951001
  2. ZIDOVUDINE [Suspect]
     Indication: HIV INFECTION
     Dates: start: 19951001
  3. ABACAVIR SULFATE [Suspect]
     Indication: HIV INFECTION
     Dates: start: 20030101
  4. STAVUDINE [Suspect]
     Indication: HIV INFECTION
     Dates: start: 20000601
  5. DIDANOSINE (FORMULATION UNKNOWN) [Suspect]
     Indication: HIV INFECTION
     Dates: start: 20000601
  6. ZALCITABINE (FORMULATION UNKNOWN) (ZALCITABINE) [Suspect]
     Indication: HIV INFECTION
     Dates: start: 20030101
  7. NEVIRAPINE [Concomitant]
  8. EFAVIRENZ [Concomitant]
  9. LOPINAVIR AND RITONAVIR [Concomitant]
  10. TENOFOVIR [Concomitant]

REACTIONS (9)
  - CARDIOLIPIN ANTIBODY POSITIVE [None]
  - CHROMOSOMAL MUTATION [None]
  - HAEMANGIOMA [None]
  - MICROCYTIC ANAEMIA [None]
  - NODULAR REGENERATIVE HYPERPLASIA [None]
  - OESOPHAGEAL VARICES HAEMORRHAGE [None]
  - PORTAL VEIN THROMBOSIS [None]
  - PROTEIN S DEFICIENCY [None]
  - PROTHROMBIN TIME PROLONGED [None]
